FAERS Safety Report 7265512-4 (Version None)
Quarter: 2011Q1

REPORT INFORMATION
  Report Type: 
  Country: None (occurrence: None)
  Receive Date: 20110131
  Receipt Date: 20110125
  Transmission Date: 20110831
  Serious: Yes (Hospitalization, Other)
  Sender: FDA-Public Use
  Company Number: US-PFIZER INC-2010095298

PATIENT
  Sex: Male

DRUGS (10)
  1. PLAVIX [Concomitant]
     Dosage: UNK
     Dates: start: 20050101
  2. SIMVASTATIN [Concomitant]
     Indication: BLOOD CHOLESTEROL
     Dosage: UNK
     Dates: start: 20050101
  3. TAMSULOSIN [Concomitant]
     Indication: PROSTATIC DISORDER
     Dosage: UNK
     Dates: start: 20050101
  4. CHANTIX [Suspect]
     Indication: SMOKING CESSATION THERAPY
     Dosage: STARTING PACK
     Dates: start: 20071001, end: 20071201
  5. POTASSIUM [Concomitant]
     Indication: SUPPLEMENTATION THERAPY
     Dosage: UNK
     Dates: start: 20050101
  6. ENALAPRIL [Concomitant]
     Indication: BLOOD PRESSURE
     Dosage: UNK
     Dates: start: 20050101
  7. FENOFIBRATE [Concomitant]
     Indication: BLOOD CHOLESTEROL
     Dosage: UNK
     Dates: start: 20050101
  8. PRAZOSIN [Concomitant]
     Indication: NIGHTMARE
     Dosage: UNK
     Dates: start: 20050101
  9. PRAZOSIN [Concomitant]
     Indication: BLOOD PRESSURE
  10. FUROSEMIDE [Concomitant]
     Indication: FLUID RETENTION
     Dosage: UNK
     Dates: start: 20050101

REACTIONS (8)
  - INTENTIONAL OVERDOSE [None]
  - SLEEP TERROR [None]
  - SUICIDE ATTEMPT [None]
  - DEPRESSION [None]
  - HALLUCINATION [None]
  - LOSS OF CONSCIOUSNESS [None]
  - ANGER [None]
  - INSOMNIA [None]
